FAERS Safety Report 8477744-8 (Version None)
Quarter: 2012Q2

REPORT INFORMATION
  Report Type: 
  Country: None (occurrence: None)
  Receive Date: 20120625
  Receipt Date: 20120612
  Transmission Date: 20120825
  Serious: Yes (Other)
  Sender: FDA-Public Use
  Company Number: US-AGG-06-2012-0503

PATIENT

DRUGS (2)
  1. HEPARIN [Concomitant]
  2. TIROFIBAN HYDROCHLORIDE [Suspect]
     Indication: CEREBRAL HAEMORRHAGE
     Dosage: 0.1 UG/KG X 1, 1 X A MINUTE INTRAVENOUS
     Route: 042

REACTIONS (2)
  - OFF LABEL USE [None]
  - HAEMORRHAGE INTRACRANIAL [None]
